FAERS Safety Report 4815950-1 (Version None)
Quarter: 2005Q4

REPORT INFORMATION
  Report Type: 
  Country: None (occurrence: None)
  Receive Date: 20051031
  Receipt Date: 20051021
  Transmission Date: 20060501
  Serious: Yes (Other)
  Sender: FDA-Public Use
  Company Number: NL-ABBOTT-05P-114-0314794-00

PATIENT
  Age: 31 Year
  Sex: Male
  Weight: 85 kg

DRUGS (4)
  1. VALPROIC ACID [Suspect]
     Indication: EPILEPSY
     Dosage: STANDARD DOSE
  2. PHENOBARBITAL TAB [Suspect]
     Indication: EPILEPSY
     Dosage: STANDARD DOSE
  3. PHENYTOIN [Suspect]
     Indication: EPILEPSY
     Dosage: STANDARD DOSE
  4. CARBAMAZEPINE [Suspect]
     Indication: EPILEPSY
     Dosage: STANDARD DOSE

REACTIONS (5)
  - BACK PAIN [None]
  - INFARCTION [None]
  - OSTEOPENIA [None]
  - OSTEOPOROSIS [None]
  - SPINAL DISORDER [None]
